FAERS Safety Report 8095247-X (Version None)
Quarter: 2012Q1

REPORT INFORMATION
  Report Type: 
  Country: None (occurrence: None)
  Receive Date: 20120129
  Receipt Date: 20111219
  Transmission Date: 20120608
  Serious: No
  Sender: FDA-Public Use
  Company Number: US-ABBOTT-11P-163-0884577-00

PATIENT
  Age: 18 Year
  Sex: Female

DRUGS (3)
  1. METHOTREXATE [Concomitant]
     Indication: CROHN'S DISEASE
     Dosage: 2.5 MG - TWO TABLETS WEEKLY
  2. HUMIRA [Suspect]
     Dates: start: 20111220
  3. HUMIRA [Suspect]
     Indication: CROHN'S DISEASE
     Dates: start: 20111001, end: 20111217

REACTIONS (7)
  - CHILLS [None]
  - NAUSEA [None]
  - INFLUENZA [None]
  - PYREXIA [None]
  - VOMITING [None]
  - DIZZINESS [None]
  - DIARRHOEA [None]
